FAERS Safety Report 17171577 (Version 1)
Quarter: 2019Q4

REPORT INFORMATION
  Report Type: Spontaneous
  Country: DE (occurrence: DE)
  Receive Date: 20191218
  Receipt Date: 20191218
  Transmission Date: 20200122
  Serious: Yes (Other)
  Sender: FDA-Public Use
  Company Number: DE-009507513-1912DEU005977

PATIENT
  Age: 73 Year
  Sex: Male

DRUGS (4)
  1. NITRENDIPINE [Concomitant]
     Active Substance: NITRENDIPINE
     Dosage: UNK
  2. EZETROL 10 MG TABLETTEN [Suspect]
     Active Substance: EZETIMIBE
     Indication: LOW DENSITY LIPOPROTEIN INCREASED
     Dosage: 10 MILLIGRAM, ONCE DAILY
     Route: 048
     Dates: start: 201712, end: 2019
  3. ASPIRIN. [Concomitant]
     Active Substance: ASPIRIN
     Dosage: UNK
  4. CLOPIDOGREL [Concomitant]
     Active Substance: CLOPIDOGREL BISULFATE
     Dosage: UNK

REACTIONS (4)
  - Myocardial infarction [Unknown]
  - Muscle spasms [Unknown]
  - Abdominal pain [Unknown]
  - Myalgia [Unknown]

NARRATIVE: CASE EVENT DATE: 2017
